FAERS Safety Report 6111447-X (Version None)
Quarter: 2009Q1

REPORT INFORMATION
  Report Type: 
  Country: None (occurrence: None)
  Receive Date: 20090309
  Receipt Date: 20090224
  Transmission Date: 20090719
  Serious: Yes (Hospitalization)
  Sender: FDA-Public Use
  Company Number: 2009AL001106

PATIENT
  Age: 77 Year
  Sex: Male

DRUGS (7)
  1. EPIRUBICIN HCL [Suspect]
     Indication: LIVER DISORDER
     Dosage: 70 MG; X1; IART
     Dates: start: 20010622
  2. . [Concomitant]
  3. . [Concomitant]
  4. . [Concomitant]
  5. . [Concomitant]
  6. . [Concomitant]
  7. . [Concomitant]

REACTIONS (1)
  - TUMOUR LYSIS SYNDROME [None]
